FAERS Safety Report 11804233 (Version 1)
Quarter: 2015Q4

REPORT INFORMATION
  Report Type: Spontaneous
  Country: US (occurrence: US)
  Receive Date: 20151204
  Receipt Date: 20151204
  Transmission Date: 20160305
  Serious: No
  Sender: FDA-Public Use
  Company Number: US-BAUSCH-BL-2014-009502

PATIENT
  Age: 51 Year
  Sex: Male

DRUGS (3)
  1. XENAZINE [Suspect]
     Active Substance: TETRABENAZINE
     Indication: HUNTINGTON^S DISEASE
     Route: 048
     Dates: start: 201410, end: 201410
  2. DIAZEPAM. [Concomitant]
     Active Substance: DIAZEPAM
     Indication: PRODUCT USED FOR UNKNOWN INDICATION
  3. XENAZINE [Suspect]
     Active Substance: TETRABENAZINE
     Route: 048
     Dates: start: 20141120

REACTIONS (5)
  - Huntington^s disease [Not Recovered/Not Resolved]
  - Movement disorder [Unknown]
  - Feeling jittery [Not Recovered/Not Resolved]
  - Feeling abnormal [Unknown]
  - Head discomfort [Unknown]

NARRATIVE: CASE EVENT DATE: 201410
